FAERS Safety Report 10062544 (Version 1)
Quarter: 2014Q1

REPORT INFORMATION
  Report Type: Spontaneous
  Country: US (occurrence: None)
  Receive Date: 20140313
  Receipt Date: 20140313
  Transmission Date: 20141002
  Serious: No
  Sender: FDA-Public Use
  Company Number: 1000051761

PATIENT
  Age: 71 Year
  Sex: Female

DRUGS (13)
  1. DALIRESP [Suspect]
     Indication: CHRONIC OBSTRUCTIVE PULMONARY DISEASE
     Route: 048
     Dates: start: 20131122
  2. LEVOTHYROID (LEVOTHYROXINE SODIUM) (LEVOTHYROXINE SODIUM) [Concomitant]
  3. CRESTOR (ROSUVASTATIN CALCIUM) (ROSUVASTATIN CALCIUM) [Concomitant]
  4. SPIRIVA (TIOTROPIUM BROMIDE) (TIOTROPIUM BROMIDE) [Concomitant]
  5. FORADIL (FORMOTEROL FUMARATE) (FORMOTEROL FUMARATE) [Concomitant]
  6. PROVENTIL HFA (ALBUTEROL) (ALBUTEROL) [Concomitant]
  7. ALBUTEROL SULFATE (SALBUTAMOL SULFATE) (SALMBUTAMOL SULFATE) [Concomitant]
  8. ASPIRIN (ACETYLSALICYLIC ACID) (ACETYLSALICYLIC ACID) [Concomitant]
  9. CEFALEXIN (CEFALEXIN) (CEFALEXIN) [Concomitant]
  10. PRILOSEC (OMEPRAZOLE) (OMEPRAZOLE) [Concomitant]
  11. CALCIUM (CALCIUM) (CALCIUM) [Concomitant]
  12. MAGNESIUM OXISE (MAGNESIUM OXIDE) (MAGNESIUM OXIDE) [Concomitant]
  13. BIOTIN (BIOTIN) (BIOTIN) [Concomitant]

REACTIONS (2)
  - Dizziness [None]
  - Myalgia [None]
